FAERS Safety Report 7481273-8 (Version None)
Quarter: 2011Q2

REPORT INFORMATION
  Report Type: 
  Country: None (occurrence: None)
  Receive Date: 20110505
  Receipt Date: 20110429
  Transmission Date: 20111010
  Serious: Yes (Hospitalization, Disabling, Other)
  Sender: FDA-Public Use
  Company Number: 2010SP042534

PATIENT
  Age: 37 Year
  Sex: Female
  Weight: 58.9676 kg

DRUGS (5)
  1. MULTI-VITAMINS [Concomitant]
  2. NASONEX [Concomitant]
  3. NUVARING [Suspect]
     Indication: CONTRACEPTION
     Dates: start: 20060601, end: 20080802
  4. SINGULAIR [Concomitant]
  5. ALBUTEROL SULFATE AUTOHALER [Concomitant]

REACTIONS (21)
  - CEREBROVASCULAR ACCIDENT [None]
  - OEDEMA PERIPHERAL [None]
  - HYPERCALCAEMIA [None]
  - CANDIDIASIS [None]
  - CEREBRAL VENOUS THROMBOSIS [None]
  - NECK PAIN [None]
  - CEREBRAL HAEMORRHAGE [None]
  - ARTHROPOD BITE [None]
  - CELLULITIS [None]
  - TINNITUS [None]
  - LABYRINTHITIS [None]
  - VIRAL INFECTION [None]
  - BLOOD CHOLESTEROL INCREASED [None]
  - DEEP VEIN THROMBOSIS [None]
  - HYPOTHYROIDISM [None]
  - TRANSIENT ISCHAEMIC ATTACK [None]
  - HYPERTENSION [None]
  - ANXIETY [None]
  - DEPRESSION [None]
  - LYME DISEASE [None]
  - ASTHMA [None]
